FAERS Safety Report 22337054 (Version 1)
Quarter: 2023Q2

REPORT INFORMATION
  Report Type: Spontaneous
  Country: AT (occurrence: AT)
  Receive Date: 20230518
  Receipt Date: 20230518
  Transmission Date: 20230722
  Serious: Yes (Other)
  Sender: FDA-Public Use
  Company Number: None

PATIENT
  Age: 82 Year
  Sex: Male

DRUGS (1)
  1. AMOXICILLIN\CLAVULANATE POTASSIUM [Suspect]
     Active Substance: AMOXICILLIN\CLAVULANATE POTASSIUM
     Indication: Infection
     Route: 065
     Dates: start: 202302

REACTIONS (4)
  - Pruritus [Unknown]
  - Swelling face [Unknown]
  - Dysarthria [Unknown]
  - Type I hypersensitivity [Unknown]

NARRATIVE: CASE EVENT DATE: 20230201
